FAERS Safety Report 9826217 (Version 1)
Quarter: 2014Q1

REPORT INFORMATION
  Report Type: Spontaneous
  Country: US (occurrence: None)
  Receive Date: 20140116
  Receipt Date: 20140116
  Transmission Date: 20141002
  Serious: Yes (Other)
  Sender: FDA-Public Use
  Company Number: None

PATIENT
  Age: 28 Year
  Sex: Female
  Weight: 65.77 kg

DRUGS (1)
  1. NOVAREL [Suspect]
     Dosage: 5,000 IU 1 TIME GIVEN INTO/UNDER THE SKIN
     Dates: start: 20140114

REACTIONS (4)
  - Pain [None]
  - Swelling [None]
  - Rash erythematous [None]
  - Rash maculo-papular [None]
